FAERS Safety Report 5329969-8 (Version None)
Quarter: 2007Q2

REPORT INFORMATION
  Report Type: 
  Country: None (occurrence: None)
  Receive Date: 20070521
  Receipt Date: 20070514
  Transmission Date: 20071010
  Serious: Yes (Other)
  Sender: FDA-Public Use
  Company Number: AT-ELI_LILLY_AND_COMPANY-AT200704005397

PATIENT
  Age: 39 Year
  Sex: Female
  Weight: 55 kg

DRUGS (2)
  1. ZYPREXA [Suspect]
     Indication: PANIC DISORDER
     Dosage: 5 MG, UNKNOWN
     Route: 048
     Dates: start: 20061025, end: 20070320
  2. FLUOXETINE [Concomitant]
     Indication: DEPRESSION
     Dosage: 20 MG, UNK
     Route: 048
     Dates: start: 20061025, end: 20070320

REACTIONS (1)
  - LEUKOPENIA [None]
